FAERS Safety Report 10307625 (Version 2)
Quarter: 2014Q3

REPORT INFORMATION
  Report Type: Spontaneous
  Country: US (occurrence: US)
  Receive Date: 20140716
  Receipt Date: 20140716
  Transmission Date: 20150326
  Serious: No
  Sender: FDA-Public Use
  Company Number: US-MYLANLABS-2013S1021978

PATIENT
  Sex: Male

DRUGS (1)
  1. CLONIDINE HYDROCHLORIDE TABLETS, USP [Suspect]
     Active Substance: CLONIDINE HYDROCHLORIDE

REACTIONS (1)
  - Hypotension [Not Recovered/Not Resolved]
